FAERS Safety Report 12489053 (Version 2)
Quarter: 2016Q3

REPORT INFORMATION
  Report Type: Spontaneous
  Country: US (occurrence: US)
  Receive Date: 20160622
  Receipt Date: 20160712
  Transmission Date: 20161109
  Serious: Yes (Other)
  Sender: FDA-Public Use
  Company Number: US-BAYER-2016-118275

PATIENT
  Age: 78 Year
  Sex: Male

DRUGS (9)
  1. RENEURON [Concomitant]
  2. ASA [Concomitant]
     Active Substance: ASPIRIN
  3. COLACE [Concomitant]
     Active Substance: DOCUSATE SODIUM
  4. NEURONTIN [Concomitant]
     Active Substance: GABAPENTIN
  5. XOFIGO [Suspect]
     Active Substance: RADIUM RA-223 DICHLORIDE
     Indication: PROSTATE CANCER STAGE IV
  6. CLONAZEPAM. [Concomitant]
     Active Substance: CLONAZEPAM
  7. ZOCOR [Concomitant]
     Active Substance: SIMVASTATIN
  8. XGEVA [Concomitant]
     Active Substance: DENOSUMAB
  9. ARICEPT [Concomitant]
     Active Substance: DONEPEZIL HYDROCHLORIDE

REACTIONS (2)
  - Blood alkaline phosphatase decreased [None]
  - Prostatic specific antigen increased [None]
